FAERS Safety Report 5166152-3 (Version None)
Quarter: 2006Q4

REPORT INFORMATION
  Report Type: 
  Country: None (occurrence: None)
  Receive Date: 20061129
  Receipt Date: 20061116
  Transmission Date: 20070319
  Serious: Yes (Other)
  Sender: FDA-Public Use
  Company Number: 2006144368

PATIENT
  Age: 73 Year
  Sex: Male
  Weight: 90.7194 kg

DRUGS (10)
  1. LIPITOR [Suspect]
     Indication: BLOOD CHOLESTEROL INCREASED
     Dosage: 10 MG (10 MG, 1 IN 1 D)
     Dates: start: 20030101
  2. MULTI-VITAMINS [Concomitant]
  3. CENTRUM (MINERALS NOS, VITAMINS NOS) [Concomitant]
  4. TOPROL-XL [Concomitant]
  5. PREVACID [Concomitant]
  6. LISINOPRIL [Concomitant]
  7. ASPIRIN [Concomitant]
  8. ALL OTHER THERAPEUTIC PRODUCTS [Concomitant]
  9. FORADIL [Concomitant]
  10. LUPRON [Concomitant]

REACTIONS (3)
  - CONSTIPATION [None]
  - IMPAIRED DRIVING ABILITY [None]
  - PAIN IN EXTREMITY [None]
